FAERS Safety Report 12876159 (Version 1)
Quarter: 2016Q4

REPORT INFORMATION
  Report Type: Spontaneous
  Country: US (occurrence: US)
  Receive Date: 20161021
  Receipt Date: 20161021
  Transmission Date: 20170207
  Serious: Yes (Other)
  Sender: FDA-Public Use
  Company Number: None

PATIENT
  Age: 66 Year
  Sex: Male
  Weight: 97.2 kg

DRUGS (15)
  1. VITAMIN E [Concomitant]
     Active Substance: .ALPHA.-TOCOPHEROL
  2. SPIRIVA [Concomitant]
     Active Substance: TIOTROPIUM BROMIDE MONOHYDRATE
  3. PLAVIX -GENERIC [Suspect]
     Active Substance: CLOPIDOGREL BISULFATE
     Indication: STENT PLACEMENT
     Route: 048
     Dates: start: 20161013, end: 20161018
  4. VITAMIN C [Concomitant]
     Active Substance: ASCORBIC ACID
  5. MULTIVITAMIN [Concomitant]
     Active Substance: VITAMINS
  6. PLAVIX -GENERIC [Suspect]
     Active Substance: CLOPIDOGREL BISULFATE
     Indication: ANTICOAGULANT THERAPY
     Route: 048
     Dates: start: 20161013, end: 20161018
  7. ADVAIR HFA [Concomitant]
     Active Substance: FLUTICASONE PROPIONATE\SALMETEROL XINAFOATE
  8. LISINOPRIL. [Concomitant]
     Active Substance: LISINOPRIL
  9. TANSULOSIN [Concomitant]
     Active Substance: TAMSULOSIN
  10. GLIMIPIRIDE [Concomitant]
     Active Substance: GLIMEPIRIDE
  11. ASPIRIN. [Concomitant]
     Active Substance: ASPIRIN
  12. FINASTERIDE. [Concomitant]
     Active Substance: FINASTERIDE
  13. RED YEAST RICE [Concomitant]
     Active Substance: DIETARY SUPPLEMENT
  14. PHENYTOIN. [Concomitant]
     Active Substance: PHENYTOIN
  15. VITAMIN D3 [Concomitant]
     Active Substance: CHOLECALCIFEROL

REACTIONS (2)
  - Urticaria [None]
  - Erythema [None]

NARRATIVE: CASE EVENT DATE: 20161013
